FAERS Safety Report 4279414-9 (Version None)
Quarter: 2004Q1

REPORT INFORMATION
  Report Type: 
  Country: None (occurrence: None)
  Receive Date: 20040127
  Receipt Date: 20031027
  Transmission Date: 20041129
  Serious: No
  Sender: FDA-Public Use
  Company Number: US-BRISTOL-MYERS SQUIBB COMPANY-12420519

PATIENT
  Age: 15 Year
  Sex: Female
  Weight: 52 kg

DRUGS (1)
  1. DOVONEX [Suspect]
     Indication: ECZEMA
     Route: 061
     Dates: start: 20031020

REACTIONS (4)
  - BURNING SENSATION [None]
  - DERMATITIS EXFOLIATIVE [None]
  - ERYTHEMA [None]
  - INFLAMMATION [None]
